FAERS Safety Report 19583307 (Version 1)
Quarter: 2021Q3

REPORT INFORMATION
  Report Type: Spontaneous
  Country: CA (occurrence: CA)
  Receive Date: 20210720
  Receipt Date: 20210720
  Transmission Date: 20211014
  Serious: Yes (Life-Threatening, Hospitalization, Disabling, Other)
  Sender: FDA-Public Use
  Company Number: CA-ACCORD-214972

PATIENT
  Age: 57 Year
  Sex: Female
  Weight: 76 kg

DRUGS (5)
  1. TEMOZOLOMIDE ACORD [Suspect]
     Active Substance: TEMOZOLOMIDE
     Indication: GLIOBLASTOMA
     Route: 048
     Dates: start: 20200228, end: 20200413
  2. SEPTRA [Concomitant]
     Active Substance: SULFAMETHOXAZOLE\TRIMETHOPRIM
     Indication: PROPHYLAXIS
     Dosage: DS MWF
     Route: 048
     Dates: start: 20200228, end: 20200413
  3. PANTOPRAZOLE [Concomitant]
     Active Substance: PANTOPRAZOLE
     Indication: GASTROOESOPHAGEAL REFLUX DISEASE
     Route: 048
     Dates: start: 20200305
  4. DEXAMETHASONE. [Concomitant]
     Active Substance: DEXAMETHASONE
     Indication: OLIGODENDROGLIOMA
     Dosage: TAPERING DOSE
     Route: 048
     Dates: start: 20201022
  5. SERTRALINE [Concomitant]
     Active Substance: SERTRALINE HYDROCHLORIDE
     Indication: ANXIETY
     Route: 048

REACTIONS (3)
  - Thrombocytopenia [Recovered/Resolved]
  - Fatigue [Unknown]
  - Disease progression [Unknown]

NARRATIVE: CASE EVENT DATE: 20200330
